FAERS Safety Report 19322971 (Version 1)
Quarter: 2021Q2

REPORT INFORMATION
  Report Type: Spontaneous
  Country: US (occurrence: US)
  Receive Date: 20210528
  Receipt Date: 20210528
  Transmission Date: 20210717
  Serious: No
  Sender: FDA-Public Use
  Company Number: US-PURDUE-USA-2020-0226600

PATIENT

DRUGS (1)
  1. OXYCONTIN [Suspect]
     Active Substance: OXYCODONE HYDROCHLORIDE
     Indication: SURGERY
     Dosage: UNK
     Route: 048

REACTIONS (7)
  - Dizziness [Unknown]
  - Migraine [Unknown]
  - Abdominal discomfort [Unknown]
  - Decreased appetite [Unknown]
  - Tremor [Unknown]
  - Sexual dysfunction [Unknown]
  - Initial insomnia [Unknown]
